FAERS Safety Report 7383359-5 (Version None)
Quarter: 2011Q1

REPORT INFORMATION
  Report Type: 
  Country: None (occurrence: None)
  Receive Date: 20110330
  Receipt Date: 20110316
  Transmission Date: 20110831
  Serious: No
  Sender: FDA-Public Use
  Company Number: US-JNJFOC-20110308156

PATIENT
  Sex: Female
  Weight: 90.72 kg

DRUGS (3)
  1. FENTANYL-100 [Suspect]
     Indication: INTERVERTEBRAL DISC PROTRUSION
     Dosage: 2 PATCHES OF 25 UG/HR. WERE USED
     Route: 062
  2. FENTANYL-100 [Suspect]
     Indication: FASCIITIS
     Dosage: 2 PATCHES OF 25 UG/HR. WERE USED
     Route: 062
  3. VYVANSE [Concomitant]
     Indication: ATTENTION DEFICIT/HYPERACTIVITY DISORDER
     Route: 065

REACTIONS (5)
  - PRODUCT ADHESION ISSUE [None]
  - PRODUCT QUALITY ISSUE [None]
  - EXPIRED DRUG ADMINISTERED [None]
  - WRONG TECHNIQUE IN DRUG USAGE PROCESS [None]
  - DRUG DISPENSING ERROR [None]
